FAERS Safety Report 5455600-7 (Version None)
Quarter: 2007Q3

REPORT INFORMATION
  Report Type: 
  Country: None (occurrence: None)
  Receive Date: 20070918
  Receipt Date: 20070330
  Transmission Date: 20080115
  Serious: Yes (Other)
  Sender: FDA-Public Use
  Company Number: US-ASTRAZENECA-2006UW21778

PATIENT
  Sex: Male
  Weight: 117.3 kg

DRUGS (6)
  1. SEROQUEL [Suspect]
     Indication: BIPOLAR DISORDER
     Dosage: 200 TO 800 MG
     Route: 048
     Dates: start: 20050401, end: 20060801
  2. SEROQUEL [Suspect]
     Indication: SLEEP DISORDER
     Dosage: 200 TO 800 MG
     Route: 048
     Dates: start: 20050401, end: 20060801
  3. XANAX [Concomitant]
  4. TRIBEPELAL [Concomitant]
  5. DEPAKOTE [Concomitant]
  6. SYMBALTA [Concomitant]

REACTIONS (8)
  - BLOOD CHOLESTEROL INCREASED [None]
  - BLOOD TRIGLYCERIDES INCREASED [None]
  - DIABETES MELLITUS [None]
  - DIABETIC COMA [None]
  - HYPERLIPIDAEMIA [None]
  - KETOACIDOSIS [None]
  - OBESITY [None]
  - PANCREATITIS [None]
